FAERS Safety Report 5171278-4 (Version None)
Quarter: 2006Q4

REPORT INFORMATION
  Report Type: 
  Country: None (occurrence: None)
  Receive Date: 20061213
  Receipt Date: 20060822
  Transmission Date: 20070319
  Serious: Yes (Other)
  Sender: FDA-Public Use
  Company Number: US-AMGEN-KDL184911

PATIENT
  Sex: Female
  Weight: 53.6 kg

DRUGS (6)
  1. ENBREL [Suspect]
     Indication: RHEUMATOID ARTHRITIS
     Route: 058
     Dates: start: 20021113
  2. ARAVA [Concomitant]
  3. METHOTREXATE [Concomitant]
  4. EVISTA [Concomitant]
  5. ALTACE [Concomitant]
  6. ZOLOFT [Concomitant]

REACTIONS (1)
  - CUTANEOUS LUPUS ERYTHEMATOSUS [None]
